FAERS Safety Report 6334751-9 (Version None)
Quarter: 2009Q3

REPORT INFORMATION
  Report Type: 
  Country: None (occurrence: None)
  Receive Date: 20090831
  Receipt Date: 20090821
  Transmission Date: 20100115
  Serious: Yes (Hospitalization)
  Sender: FDA-Public Use
  Company Number: PHHO2009NO10387

PATIENT
  Sex: Male
  Weight: 70 kg

DRUGS (2)
  1. RAD 666 RAD++PTR [Suspect]
     Indication: HEART TRANSPLANT
  2. NEORAL [Suspect]
     Indication: HEART TRANSPLANT

REACTIONS (1)
  - SUBARACHNOID HAEMORRHAGE [None]
